FAERS Safety Report 6927672-1 (Version None)
Quarter: 2010Q3

REPORT INFORMATION
  Report Type: 
  Country: None (occurrence: None)
  Receive Date: 20100817
  Receipt Date: 20100722
  Transmission Date: 20110219
  Serious: Yes (Other)
  Sender: FDA-Public Use
  Company Number: A0867213A

PATIENT
  Age: 73 Year
  Sex: Female
  Weight: 68.6 kg

DRUGS (3)
  1. VOTRIENT [Suspect]
     Dosage: 800MG PER DAY
     Route: 048
     Dates: start: 20100623, end: 20100624
  2. FENTANYL-75 [Concomitant]
  3. NASAL SPRAY (OTC) [Concomitant]

REACTIONS (2)
  - ABDOMINAL PAIN [None]
  - RECTAL HAEMORRHAGE [None]
